FAERS Safety Report 18944442 (Version 1)
Quarter: 2021Q1

REPORT INFORMATION
  Report Type: Spontaneous
  Country: US (occurrence: US)
  Receive Date: 20210225
  Receipt Date: 20210225
  Transmission Date: 20210420
  Serious: Yes (Death)
  Sender: FDA-Public Use
  Company Number: None

PATIENT
  Age: 73 Year
  Sex: Female

DRUGS (11)
  1. MIDODRINE [Concomitant]
     Active Substance: MIDODRINE
  2. FAMOTIDINE. [Concomitant]
     Active Substance: FAMOTIDINE
  3. ALBUTEROL HFA [Concomitant]
     Active Substance: ALBUTEROL SULFATE
  4. ALBUTEROL NEB SOLN [Concomitant]
  5. TADALAFIL. [Concomitant]
     Active Substance: TADALAFIL
  6. CLEARLAX [Concomitant]
     Active Substance: POLYETHYLENE GLYCOL 3350
  7. OPSUMIT [Suspect]
     Active Substance: MACITENTAN
     Indication: PULMONARY ARTERIAL HYPERTENSION
     Route: 048
     Dates: start: 20170918, end: 202102
  8. ATORVASTATIN [Concomitant]
     Active Substance: ATORVASTATIN
  9. BUMETANIDE. [Concomitant]
     Active Substance: BUMETANIDE
  10. DIGOXIN. [Concomitant]
     Active Substance: DIGOXIN
  11. FLONASE [Concomitant]
     Active Substance: FLUTICASONE PROPIONATE

REACTIONS (2)
  - Acute respiratory failure [None]
  - Renal failure [None]

NARRATIVE: CASE EVENT DATE: 20210213
